FAERS Safety Report 12297288 (Version 3)
Quarter: 2016Q3

REPORT INFORMATION
  Report Type: Spontaneous
  Country: US (occurrence: US)
  Receive Date: 20160422
  Receipt Date: 20160727
  Transmission Date: 20161109
  Serious: Yes (Other)
  Sender: FDA-Public Use
  Company Number: US-BAYER-2016-037684

PATIENT
  Age: 35 Year
  Sex: Female
  Weight: 80.7 kg

DRUGS (1)
  1. MIRENA [Suspect]
     Active Substance: LEVONORGESTREL
     Indication: CONTRACEPTION
     Route: 015

REACTIONS (3)
  - Medical device monitoring error [Unknown]
  - Uterine perforation [Unknown]
  - Hysterosalpingogram abnormal [Unknown]

NARRATIVE: CASE EVENT DATE: 20150929
